FAERS Safety Report 4428622-2 (Version None)
Quarter: 2004Q3

REPORT INFORMATION
  Report Type: 
  Country: None (occurrence: None)
  Receive Date: 20040818
  Receipt Date: 20030627
  Transmission Date: 20050211
  Serious: No
  Sender: FDA-Public Use
  Company Number: US-BRISTOL-MYERS SQUIBB COMPANY-12313060

PATIENT
  Age: 89 Year
  Sex: Female
  Weight: 47 kg

DRUGS (10)
  1. TEQUIN [Suspect]
     Indication: NASOPHARYNGITIS
     Route: 048
     Dates: start: 20030626, end: 20030626
  2. LANOXIN [Concomitant]
  3. KERLONE [Concomitant]
  4. ARICEPT [Concomitant]
  5. MAXIDEX [Concomitant]
  6. MULTI-VITAMIN [Concomitant]
  7. VITAMIN C [Concomitant]
  8. VITAMIN E [Concomitant]
  9. CHONDROITIN + GLUCOSAMINE [Concomitant]
  10. TAMOXIFEN CITRATE [Concomitant]

REACTIONS (1)
  - VOMITING [None]
